FAERS Safety Report 4437531-4 (Version None)
Quarter: 2004Q3

REPORT INFORMATION
  Report Type: 
  Country: None (occurrence: None)
  Receive Date: 20040830
  Receipt Date: 20040830
  Transmission Date: 20050211
  Serious: Yes (Hospitalization)
  Sender: FDA-Public Use
  Company Number: None

PATIENT
  Age: 39 Year
  Sex: Male
  Weight: 86 kg

DRUGS (3)
  1. PEGASYS [Suspect]
     Indication: HEPATITIS C
     Dosage: 180 MCG, SUBQ - WEEKLY
     Route: 058
     Dates: start: 20040407
  2. COPEGUS [Suspect]
     Indication: HEPATITIS C
     Dosage: 1000 MG PO Q D
     Route: 048
     Dates: start: 20040407
  3. NEUPOGEN [Concomitant]

REACTIONS (1)
  - DERMATITIS EXFOLIATIVE [None]
